FAERS Safety Report 6974216-4 (Version None)
Quarter: 2010Q3

REPORT INFORMATION
  Report Type: 
  Country: None (occurrence: None)
  Receive Date: 20100909
  Receipt Date: 20080701
  Transmission Date: 20110219
  Serious: Yes (Hospitalization)
  Sender: FDA-Public Use
  Company Number: US-WYE-H00624007

PATIENT
  Sex: Female
  Weight: 68.1 kg

DRUGS (12)
  1. PROTONIX [Suspect]
     Indication: GASTROOESOPHAGEAL REFLUX DISEASE
     Route: 048
     Dates: start: 20070201, end: 20071018
  2. SEROQUEL [Concomitant]
     Dosage: UNKNOWN
  3. METOCLOPRAMIDE [Concomitant]
     Dosage: UNKNOWN
  4. PERCOCET [Suspect]
     Dosage: 5MG/325
  5. FENTANYL CITRATE [Concomitant]
     Dosage: 10 MCG
  6. ESTRADIOL [Concomitant]
     Dosage: 1 MG
  7. ALBUTEROL [Concomitant]
     Dosage: UNKNOWN
  8. FLONASE [Concomitant]
     Dosage: UNKNOWN
  9. ZYRTEC [Concomitant]
     Dosage: 10 MG
  10. SIMVASTATIN [Concomitant]
     Dosage: 10 MG
     Dates: start: 20070301, end: 20070101
  11. CLONIDINE [Concomitant]
     Dosage: UNKNOWN
  12. OMACOR [Concomitant]
     Dosage: 2 MG AT HS

REACTIONS (7)
  - ALANINE AMINOTRANSFERASE INCREASED [None]
  - ASPARTATE AMINOTRANSFERASE INCREASED [None]
  - BLOOD ALKALINE PHOSPHATASE INCREASED [None]
  - BLOOD CHOLESTEROL INCREASED [None]
  - BLOOD TRIGLYCERIDES INCREASED [None]
  - HIGH DENSITY LIPOPROTEIN INCREASED [None]
  - LOW DENSITY LIPOPROTEIN INCREASED [None]
